FAERS Safety Report 9205465 (Version 1)
Quarter: 2013Q2

REPORT INFORMATION
  Report Type: Spontaneous
  Country: MX (occurrence: MX)
  Receive Date: 20130403
  Receipt Date: 20130403
  Transmission Date: 20140414
  Serious: Yes (Other)
  Sender: FDA-Public Use
  Company Number: MX-009507513-1302MEX010873

PATIENT
  Age: 89 Year
  Sex: Female
  Weight: 50 kg

DRUGS (9)
  1. FOSAMAX [Suspect]
     Indication: OSTEOPOROSIS
     Dosage: 70 MG, QW
     Route: 048
     Dates: start: 201210, end: 201302
  2. FOSAMAX PLUS [Suspect]
     Indication: OSTEOPOROSIS
     Dosage: UNK
     Route: 048
     Dates: start: 201303, end: 201303
  3. OMEPRAZOLE [Concomitant]
     Indication: COLITIS ULCERATIVE
     Dosage: 1 DF, QD
     Route: 048
  4. MESALAMINE [Concomitant]
     Indication: COLITIS ULCERATIVE
     Dosage: 3 DF, QD
     Route: 048
  5. COZAAR [Concomitant]
     Indication: HYPERTENSION
     Dosage: 2 DF, QD
  6. METOPROLOL [Concomitant]
     Indication: HYPERTENSION
     Dosage: 2 DF, QD
     Route: 048
  7. NIFEDIPINE [Concomitant]
     Indication: HYPERTENSION
     Dosage: 1 DF, QD
     Route: 048
     Dates: start: 201210
  8. RANITIDINE [Concomitant]
     Dosage: 1 DF, QD
  9. RANITIDINE [Concomitant]
     Dosage: 2 DF, QD

REACTIONS (6)
  - Pneumonia [Not Recovered/Not Resolved]
  - Dyspepsia [Not Recovered/Not Resolved]
  - Gastrooesophageal reflux disease [Recovered/Resolved]
  - Abdominal discomfort [Not Recovered/Not Resolved]
  - Wrong technique in drug usage process [Unknown]
  - Drug administration error [Unknown]
